FAERS Safety Report 5113831-X (Version None)
Quarter: 2006Q3

REPORT INFORMATION
  Report Type: 
  Country: None (occurrence: None)
  Receive Date: 20060921
  Receipt Date: 20060914
  Transmission Date: 20061208
  Serious: Yes (Hospitalization)
  Sender: FDA-Public Use
  Company Number: 06-NIP00140

PATIENT
  Age: 57 Year
  Sex: Male

DRUGS (6)
  1. NIPENT [Suspect]
     Indication: CHRONIC LYMPHOCYTIC LEUKAEMIA
     Dosage: (6 CYCLES)
     Dates: start: 20060104, end: 20060508
  2. CYCLOPHOSPHAMIDE [Suspect]
     Indication: CHRONIC LYMPHOCYTIC LEUKAEMIA
     Dosage: (6 (CYCLES)
     Dates: start: 20060104, end: 20060508
  3. RITUXIMAB (RITUXIMAB) (RITUXIMAB) [Suspect]
     Indication: CHRONIC LYMPHOCYTIC LEUKAEMIA
     Dosage: (6 CYCLES)
     Dates: start: 20060104, end: 20060508
  4. ACYCLOVIR (ACICLOVIR) (ACICLOVIR) [Concomitant]
  5. ALLOPURINOL (ALLOPURINOL) (ALLOPURINOL) [Concomitant]
  6. SULFAMETHOXAZOLE/TRIMETHROPRIM (SULFAMETHOXAZOLE, TRIMETHOPRIM) (SULFA [Concomitant]

REACTIONS (1)
  - BRONCHOPULMONARY ASPERGILLOSIS [None]
